FAERS Safety Report 16300509 (Version 1)
Quarter: 2019Q2

REPORT INFORMATION
  Report Type: Spontaneous
  Country: FR (occurrence: FR)
  Receive Date: 20190510
  Receipt Date: 20190510
  Transmission Date: 20190711
  Serious: Yes (Other)
  Sender: FDA-Public Use
  Company Number: FR-009507513-1901FRA011187

PATIENT
  Age: 48 Year
  Sex: Female
  Weight: 64 kg

DRUGS (6)
  1. ACICLOVIR MYLAN [Suspect]
     Active Substance: ACYCLOVIR
     Indication: INFECTION
     Dosage: 900 MILLIGRAM, QD
     Route: 041
     Dates: start: 20181113, end: 20181203
  2. BACTRIM [Suspect]
     Active Substance: SULFAMETHOXAZOLE\TRIMETHOPRIM
     Indication: INFECTION
     Dosage: 400 MILLIGRAM, QD (ALSO REPORTED AS 400 MG WITH 80 MG)
     Route: 041
     Dates: start: 20181119, end: 20181123
  3. NOXAFIL [Suspect]
     Active Substance: POSACONAZOLE
     Indication: INFECTION
     Dosage: 600 MILLIGRAM, QD
     Route: 048
     Dates: start: 20181116, end: 20181123
  4. FUROSEMIDE. [Suspect]
     Active Substance: FUROSEMIDE
     Indication: HYPERTENSION
     Dosage: 80 MILLIGRAM, QD
     Route: 041
     Dates: start: 20181113, end: 20181122
  5. CIPROFLOXACIN HYDROCHLORIDE. [Suspect]
     Active Substance: CIPROFLOXACIN HYDROCHLORIDE
     Indication: INFECTION
     Dosage: 1500 MILLIGRAM, QD
     Route: 048
     Dates: start: 20181113, end: 20181122
  6. ONDANSETRON ACCORD [Suspect]
     Active Substance: ONDANSETRON
     Indication: NAUSEA
     Dosage: 16 MILLIGRAM, QD (ALSO REPORTED AS IF NECESSARY)
     Route: 041

REACTIONS (3)
  - Cholestasis [Recovered/Resolved]
  - Pancreatitis acute [Recovered/Resolved]
  - Hepatocellular injury [Recovered/Resolved]

NARRATIVE: CASE EVENT DATE: 20181118
